FAERS Safety Report 21568522 (Version 1)
Quarter: 2022Q4

REPORT INFORMATION
  Report Type: Spontaneous
  Country: None (occurrence: US)
  Receive Date: 20221108
  Receipt Date: 20221108
  Transmission Date: 20230112
  Serious: No
  Sender: FDA-Public Use
  Company Number: US-Bio Products Laboratory Ltd-2134657

PATIENT
  Age: 63 Year
  Sex: Male

DRUGS (10)
  1. HUMAN IMMUNOGLOBULIN G [Suspect]
     Active Substance: HUMAN IMMUNOGLOBULIN G
     Indication: Mycobacterium chelonae infection
     Route: 042
  2. INFLIXIMAB [Concomitant]
     Active Substance: INFLIXIMAB
  3. INSULIN HUMAN [Concomitant]
     Active Substance: INSULIN HUMAN
  4. LISINOPRIL [Concomitant]
     Active Substance: LISINOPRIL
  5. OXYCODONE HYDROCHLORIDE [Concomitant]
     Active Substance: OXYCODONE HYDROCHLORIDE
  6. PANTOPRAZOLE SODIUM [Concomitant]
     Active Substance: PANTOPRAZOLE SODIUM
  7. AMLODIPINE MALEATE [Concomitant]
     Active Substance: AMLODIPINE MALEATE
  8. BALSALAZIDE DISODIUM [Concomitant]
     Active Substance: BALSALAZIDE DISODIUM
  9. GABAPENTIN [Concomitant]
     Active Substance: GABAPENTIN
  10. HYDROCHLOROTHIAZIDE [Concomitant]
     Active Substance: HYDROCHLOROTHIAZIDE

REACTIONS (3)
  - False positive investigation result [Unknown]
  - Drug ineffective for unapproved indication [Unknown]
  - Off label use [Unknown]
